FAERS Safety Report 23315869 (Version 2)
Quarter: 2024Q1

REPORT INFORMATION
  Report Type: Report from Study
  Country: CN (occurrence: CN)
  Receive Date: 20231219
  Receipt Date: 20240118
  Transmission Date: 20240410
  Serious: No
  Sender: FDA-Public Use
  Company Number: CN-PFIZER INC-PV202300203876

PATIENT
  Age: 87 Year
  Sex: Male

DRUGS (93)
  1. NIRMATRELVIR\RITONAVIR [Suspect]
     Active Substance: NIRMATRELVIR\RITONAVIR
     Indication: COVID-19
     Dosage: [NIRMATRELVIR 300MG]/[RITONAVIR 100MG], 2X/DAY, PC
     Dates: start: 20220502, end: 20220507
  2. NIRMATRELVIR\RITONAVIR [Suspect]
     Active Substance: NIRMATRELVIR\RITONAVIR
     Dosage: [NIRMATRELVIR 300MG]/[RITONAVIR 100MG], 2X/DAY, PC
     Dates: start: 20220509, end: 20220509
  3. NIRMATRELVIR\RITONAVIR [Suspect]
     Active Substance: NIRMATRELVIR\RITONAVIR
     Dosage: [NIRMATRELVIR 150MG]/[RITONAVIR 100MG], 2X/DAY, PC
     Dates: start: 20220510, end: 20220514
  4. NIRMATRELVIR\RITONAVIR [Suspect]
     Active Substance: NIRMATRELVIR\RITONAVIR
     Dosage: [NIRMATRELVIR 150MG]/[RITONAVIR 100MG], 2X/DAY, PC
     Dates: start: 20220523, end: 20220526
  5. MEROPENEM [Concomitant]
     Active Substance: MEROPENEM
     Indication: Anti-infective therapy
     Dosage: UNK
     Dates: start: 20220424, end: 20220424
  6. MEROPENEM [Concomitant]
     Active Substance: MEROPENEM
     Dosage: UNK
     Route: 050
     Dates: start: 20220424, end: 20220430
  7. AMBROXOL HYDROCHLORIDE [Concomitant]
     Active Substance: AMBROXOL HYDROCHLORIDE
     Indication: Productive cough
     Dosage: UNK
     Route: 042
     Dates: start: 20220424, end: 20220506
  8. AMBROXOL HYDROCHLORIDE [Concomitant]
     Active Substance: AMBROXOL HYDROCHLORIDE
     Dosage: UNK
     Route: 042
     Dates: start: 20220518, end: 20220518
  9. AMBROXOL HYDROCHLORIDE [Concomitant]
     Active Substance: AMBROXOL HYDROCHLORIDE
     Dosage: UNK
     Dates: start: 20220518, end: 20220522
  10. HEPARIN SODIUM [Concomitant]
     Active Substance: HEPARIN SODIUM
     Indication: Prophylaxis
     Dosage: UNK (LOW MOLECULAR WEIGHT)
     Route: 058
     Dates: start: 20220424, end: 20220504
  11. HEPARIN SODIUM [Concomitant]
     Active Substance: HEPARIN SODIUM
     Dosage: UNK (LOW MOLECULAR WEIGHT)
     Route: 058
     Dates: start: 20220426, end: 20220427
  12. HEPARIN SODIUM [Concomitant]
     Active Substance: HEPARIN SODIUM
     Dosage: UNK (LOW MOLECULAR WEIGHT)
     Route: 058
     Dates: start: 20220504, end: 20220512
  13. HEPARIN SODIUM [Concomitant]
     Active Substance: HEPARIN SODIUM
     Dosage: UNK (LOW MOLECULAR WEIGHT)
     Route: 058
     Dates: start: 20220512, end: 20220515
  14. HERBALS\MENTHOL [Concomitant]
     Active Substance: HERBALS\MENTHOL
     Indication: Prophylaxis
     Dosage: UNK
     Route: 048
     Dates: start: 20220429, end: 20220506
  15. CEFEPIME HYDROCHLORIDE [Concomitant]
     Active Substance: CEFEPIME HYDROCHLORIDE
     Indication: Anti-infective therapy
     Dosage: UNK
     Route: 050
     Dates: start: 20220430, end: 20220430
  16. CEFEPIME HYDROCHLORIDE [Concomitant]
     Active Substance: CEFEPIME HYDROCHLORIDE
     Dosage: UNK
     Route: 050
     Dates: start: 20220430, end: 20220506
  17. TEICOPLANIN [Concomitant]
     Active Substance: TEICOPLANIN
     Indication: Anti-infective therapy
     Dosage: UNK
     Dates: start: 20220430, end: 20220430
  18. TEICOPLANIN [Concomitant]
     Active Substance: TEICOPLANIN
     Dosage: UNK
     Route: 050
     Dates: start: 20220430, end: 20220506
  19. HERBALS [Concomitant]
     Active Substance: HERBALS
     Indication: COVID-19
     Dosage: UNK
     Route: 050
     Dates: start: 20220430, end: 20220506
  20. METHYLPREDNISOLONE SODIUM SUCCINATE [Concomitant]
     Active Substance: METHYLPREDNISOLONE SODIUM SUCCINATE
     Indication: Inflammation
     Dosage: UNK
     Route: 042
     Dates: start: 20220430, end: 20220506
  21. THYMUS [THYMUS SPP.] [Concomitant]
     Indication: Immunodeficiency
     Dosage: UNK (METHOD)
     Route: 058
     Dates: start: 20220504, end: 20220504
  22. THYMUS [THYMUS SPP.] [Concomitant]
     Indication: Immunodeficiency
     Dosage: UNK (METHOD)
     Route: 058
     Dates: start: 20220504, end: 20220513
  23. THYMUS [THYMUS SPP.] [Concomitant]
     Dosage: UNK (METHOD)
     Dates: start: 20220513, end: 20220524
  24. THYMUS [THYMUS SPP.] [Concomitant]
     Dosage: UNK (METHOD)
     Route: 058
     Dates: start: 20220524, end: 20220526
  25. DEXTROSE [Concomitant]
     Active Substance: DEXTROSE\DEXTROSE MONOHYDRATE
     Indication: Supplementation therapy
     Dosage: UNK
     Dates: start: 20220429, end: 20220429
  26. DEXTROSE [Concomitant]
     Active Substance: DEXTROSE\DEXTROSE MONOHYDRATE
     Dosage: UNK
     Route: 050
     Dates: start: 20220504, end: 20220512
  27. DEXTROSE [Concomitant]
     Active Substance: DEXTROSE\DEXTROSE MONOHYDRATE
     Dosage: UNK
     Route: 050
     Dates: start: 20220505, end: 20220505
  28. DEXTROSE [Concomitant]
     Active Substance: DEXTROSE\DEXTROSE MONOHYDRATE
     Dosage: UNK
     Route: 050
     Dates: start: 20220506, end: 20220506
  29. DEXTROSE [Concomitant]
     Active Substance: DEXTROSE\DEXTROSE MONOHYDRATE
     Dosage: UNK
     Dates: start: 20220510, end: 20220510
  30. DEXTROSE [Concomitant]
     Active Substance: DEXTROSE\DEXTROSE MONOHYDRATE
     Dosage: UNK
     Route: 050
     Dates: start: 20220512, end: 20220512
  31. DEXTROSE [Concomitant]
     Active Substance: DEXTROSE\DEXTROSE MONOHYDRATE
     Dosage: UNK
     Dates: start: 20220512, end: 20220521
  32. DEXTROSE [Concomitant]
     Active Substance: DEXTROSE\DEXTROSE MONOHYDRATE
     Dosage: UNK
     Route: 050
     Dates: start: 20220522, end: 20220522
  33. ALBUMIN HUMAN [Concomitant]
     Active Substance: ALBUMIN HUMAN
     Indication: Supplementation therapy
     Dosage: UNK
     Route: 050
     Dates: start: 20220507, end: 20220507
  34. ALBUMIN HUMAN [Concomitant]
     Active Substance: ALBUMIN HUMAN
     Dosage: UNK
     Route: 050
     Dates: start: 20220507, end: 20220510
  35. OLANZAPINE [Concomitant]
     Active Substance: OLANZAPINE
     Indication: Psychotherapy
     Dosage: UNK
     Route: 048
     Dates: start: 20220508, end: 20220512
  36. OLANZAPINE [Concomitant]
     Active Substance: OLANZAPINE
     Dosage: UNK
     Route: 048
     Dates: start: 20220509, end: 20220509
  37. OLANZAPINE [Concomitant]
     Active Substance: OLANZAPINE
     Dosage: UNK
     Route: 048
     Dates: start: 20220517, end: 20220526
  38. ENTERAL NUTRITIONAL SUSPENSION (SP) [Concomitant]
     Indication: Nutritional supplementation
     Dosage: UNK
     Dates: start: 20220502, end: 20220502
  39. ENTERAL NUTRITIONAL SUSPENSION (SP) [Concomitant]
     Dosage: UNK
     Route: 050
     Dates: start: 20220512, end: 20220512
  40. ENTERAL NUTRITIONAL SUSPENSION (SP) [Concomitant]
     Dosage: UNK
     Route: 050
     Dates: start: 20220513, end: 20220513
  41. ENTERAL NUTRITIONAL SUSPENSION (SP) [Concomitant]
     Dosage: UNK
     Route: 050
     Dates: start: 20220513, end: 20220517
  42. ENTERAL NUTRITIONAL SUSPENSION (SP) [Concomitant]
     Dosage: UNK
     Route: 050
     Dates: start: 20220517, end: 20220526
  43. COMPOUND ALPHA KETOACID [Concomitant]
     Indication: Renal disorder prophylaxis
     Dosage: UNK
     Route: 048
     Dates: start: 20220513, end: 20220513
  44. COMPOUND ALPHA KETOACID [Concomitant]
     Dosage: UNK
     Route: 048
     Dates: start: 20220513, end: 20220524
  45. ERYTHROPOIETIN [Concomitant]
     Active Substance: ERYTHROPOIETIN
     Indication: Anaemia
     Dosage: UNK
     Route: 058
     Dates: start: 20220517, end: 20220526
  46. RABEPRAZOLE SODIUM [Concomitant]
     Active Substance: RABEPRAZOLE SODIUM
     Indication: Prophylaxis
     Dosage: UNK (ENTERIC COATED)
     Route: 048
     Dates: start: 20220517, end: 20220519
  47. RABEPRAZOLE SODIUM [Concomitant]
     Active Substance: RABEPRAZOLE SODIUM
     Dosage: UNK (ENTERIC COATED)
     Route: 048
     Dates: start: 20220525
  48. RABEPRAZOLE SODIUM [Concomitant]
     Active Substance: RABEPRAZOLE SODIUM
     Dosage: UNK (ENTERIC COATED)
     Route: 048
     Dates: start: 20220519, end: 20220526
  49. FERROUS SUCCINATE [Concomitant]
     Active Substance: FERROUS SUCCINATE
     Indication: Mineral supplementation
     Dosage: UNK (SUSTAINED RELEASE TABLET)
     Route: 048
     Dates: start: 20220517, end: 20220519
  50. FERROUS SUCCINATE [Concomitant]
     Active Substance: FERROUS SUCCINATE
     Dosage: UNK (SUSTAINED RELEASE TABLET)
     Route: 048
     Dates: start: 20220525
  51. FERROUS SUCCINATE [Concomitant]
     Active Substance: FERROUS SUCCINATE
     Dosage: UNK (SUSTAINED RELEASE TABLET)
     Dates: start: 20220519, end: 20220526
  52. FOLIC ACID [Concomitant]
     Active Substance: FOLIC ACID
     Indication: Anaemia
     Dosage: UNK
     Route: 048
     Dates: start: 20220519, end: 20220526
  53. VITAMIN C [Concomitant]
     Active Substance: ASCORBIC ACID
     Indication: Supplementation therapy
     Dosage: UNK
     Route: 050
     Dates: start: 20220512, end: 20220512
  54. VITAMIN C [Concomitant]
     Active Substance: ASCORBIC ACID
     Dosage: UNK
     Route: 048
     Dates: start: 20220519, end: 20220526
  55. POTASSIUM CHLORIDE [Concomitant]
     Active Substance: POTASSIUM CHLORIDE
     Indication: Mineral supplementation
     Dosage: UNK
     Route: 050
     Dates: start: 20220429, end: 20220429
  56. POTASSIUM CHLORIDE [Concomitant]
     Active Substance: POTASSIUM CHLORIDE
     Dosage: UNK
     Route: 048
     Dates: start: 20220501, end: 20220501
  57. POTASSIUM CHLORIDE [Concomitant]
     Active Substance: POTASSIUM CHLORIDE
     Dosage: UNK
     Route: 048
     Dates: start: 20220502, end: 20220502
  58. POTASSIUM CHLORIDE [Concomitant]
     Active Substance: POTASSIUM CHLORIDE
     Dosage: UNK
     Route: 050
     Dates: start: 20220504, end: 20220504
  59. POTASSIUM CHLORIDE [Concomitant]
     Active Substance: POTASSIUM CHLORIDE
     Dosage: UNK
     Route: 048
     Dates: start: 20220504, end: 20220504
  60. POTASSIUM CHLORIDE [Concomitant]
     Active Substance: POTASSIUM CHLORIDE
     Dosage: UNK
     Route: 050
     Dates: start: 20220505, end: 20220505
  61. POTASSIUM CHLORIDE [Concomitant]
     Active Substance: POTASSIUM CHLORIDE
     Dosage: UNK
     Route: 050
     Dates: start: 20220506, end: 20220506
  62. POTASSIUM CHLORIDE [Concomitant]
     Active Substance: POTASSIUM CHLORIDE
     Dosage: UNK
     Dates: start: 20220510, end: 20220510
  63. POTASSIUM CHLORIDE [Concomitant]
     Active Substance: POTASSIUM CHLORIDE
     Dosage: UNK
     Route: 050
     Dates: start: 20220518, end: 20220518
  64. POTASSIUM CHLORIDE [Concomitant]
     Active Substance: POTASSIUM CHLORIDE
     Dosage: UNK
     Route: 048
     Dates: start: 20220519, end: 20220519
  65. POTASSIUM CHLORIDE [Concomitant]
     Active Substance: POTASSIUM CHLORIDE
     Dosage: UNK
     Route: 048
     Dates: start: 20220519, end: 20220521
  66. ENOXAPARIN SODIUM [Concomitant]
     Active Substance: ENOXAPARIN SODIUM
     Indication: Drug therapy
     Dosage: UNK
     Route: 058
     Dates: start: 20220504, end: 20220504
  67. ENOXAPARIN SODIUM [Concomitant]
     Active Substance: ENOXAPARIN SODIUM
     Dosage: UNK
     Route: 058
     Dates: start: 20220522, end: 20220522
  68. ENOXAPARIN SODIUM [Concomitant]
     Active Substance: ENOXAPARIN SODIUM
     Dosage: UNK
     Route: 058
     Dates: start: 20220522, end: 20220523
  69. ENOXAPARIN SODIUM [Concomitant]
     Active Substance: ENOXAPARIN SODIUM
     Dosage: UNK
     Route: 058
     Dates: start: 20220523, end: 20220526
  70. HERBALS\MENTHOL [Concomitant]
     Active Substance: HERBALS\MENTHOL
     Indication: COVID-19
     Dosage: UNK
     Route: 048
     Dates: start: 20220417, end: 20220417
  71. HERBALS\MENTHOL [Concomitant]
     Active Substance: HERBALS\MENTHOL
     Dosage: UNK
     Route: 048
     Dates: start: 20220419, end: 20220419
  72. HERBALS\MENTHOL [Concomitant]
     Active Substance: HERBALS\MENTHOL
     Dosage: UNK
     Route: 048
     Dates: start: 20220420, end: 20220420
  73. HERBALS\MENTHOL [Concomitant]
     Active Substance: HERBALS\MENTHOL
     Dosage: UNK
     Route: 048
     Dates: start: 20220423, end: 20220423
  74. HERBALS\MENTHOL [Concomitant]
     Active Substance: HERBALS\MENTHOL
     Dosage: UNK
     Route: 048
     Dates: start: 20220525, end: 20220525
  75. ACETAMINOPHEN [Concomitant]
     Active Substance: ACETAMINOPHEN
     Indication: Pyrexia
     Dosage: UNK
     Route: 048
     Dates: start: 20220419, end: 20220419
  76. INSULIN HUMAN [Concomitant]
     Active Substance: INSULIN HUMAN
     Indication: Blood glucose decreased
     Dosage: UNK
     Route: 050
     Dates: start: 20220502, end: 20220502
  77. INSULIN HUMAN [Concomitant]
     Active Substance: INSULIN HUMAN
     Dosage: UNK
     Route: 050
     Dates: start: 20220504, end: 20220504
  78. INSULIN HUMAN [Concomitant]
     Active Substance: INSULIN HUMAN
     Dosage: UNK
     Route: 050
     Dates: start: 20220505, end: 20220505
  79. INSULIN HUMAN [Concomitant]
     Active Substance: INSULIN HUMAN
     Dosage: UNK
     Route: 050
     Dates: start: 20220506, end: 20220506
  80. CALCIUM GLUCONATE [CALCIUM GLUCEPTATE;CALCIUM GLUCONATE] [Concomitant]
     Indication: Prophylaxis
     Dosage: UNK
     Route: 050
     Dates: start: 20220506, end: 20220506
  81. CALCIUM GLUCONATE [CALCIUM GLUCEPTATE;CALCIUM GLUCONATE] [Concomitant]
     Dosage: UNK
     Dates: start: 20220510, end: 20220510
  82. CALCIUM GLUCONATE [CALCIUM GLUCEPTATE;CALCIUM GLUCONATE] [Concomitant]
     Dosage: UNK
     Route: 050
     Dates: start: 20220522, end: 20220522
  83. METOPROLOL SUCCINATE [Concomitant]
     Active Substance: METOPROLOL SUCCINATE
     Indication: Heart rate
     Dosage: UNK
     Dates: start: 20220509, end: 20220509
  84. VITAMIN B6 [Concomitant]
     Active Substance: PYRIDOXINE HYDROCHLORIDE
     Indication: Nutritional supplementation
     Dosage: UNK
     Route: 050
     Dates: start: 20220512, end: 20220512
  85. LACTULOSE [Concomitant]
     Active Substance: LACTULOSE
     Indication: Constipation
     Dosage: UNK
     Route: 048
     Dates: start: 20220515, end: 20220515
  86. GLYCERIN [Concomitant]
     Active Substance: GLYCERIN
     Indication: Constipation
     Dosage: UNK
     Route: 054
     Dates: start: 20220515, end: 20220515
  87. PROMETHAZINE [Concomitant]
     Active Substance: PROMETHAZINE HYDROCHLORIDE
     Indication: Antiallergic therapy
     Dosage: UNK
     Route: 030
     Dates: start: 20220515, end: 20220515
  88. HUMAN RED BLOOD CELL [Concomitant]
     Active Substance: HUMAN RED BLOOD CELL
     Indication: Prophylaxis
     Dosage: UNK
     Route: 050
     Dates: start: 20220517, end: 20220517
  89. TAN RE QING [Concomitant]
     Indication: Prophylaxis
     Dosage: UNK
     Route: 048
     Dates: start: 20220525
  90. MICONAZOLE NITRATE [Concomitant]
     Active Substance: MICONAZOLE NITRATE
     Indication: Pruritus
     Dosage: UNK
     Route: 061
     Dates: start: 20220526, end: 20220526
  91. SHENG MAI [CODONOPSIS SPP. ROOT;OPHIOPOGON JAPONICUS ROOT TUBER;SCHISA [Concomitant]
     Indication: Supplementation therapy
     Dosage: UNK
     Route: 058
     Dates: start: 20220504, end: 20220512
  92. SHENG MAI [CODONOPSIS SPP. ROOT;OPHIOPOGON JAPONICUS ROOT TUBER;SCHISA [Concomitant]
     Dosage: UNK
     Route: 050
     Dates: start: 20220512, end: 20220521
  93. SHEN SONG YANG XIN [Concomitant]
     Indication: Supplementation therapy
     Dosage: UNK
     Route: 050
     Dates: start: 20220504, end: 20220504

REACTIONS (1)
  - Overdose [Unknown]
